FAERS Safety Report 9452605 (Version 1)
Quarter: 2013Q3

REPORT INFORMATION
  Report Type: Spontaneous
  Country: US (occurrence: US)
  Receive Date: 20130812
  Receipt Date: 20130812
  Transmission Date: 20140515
  Serious: No
  Sender: FDA-Public Use
  Company Number: US-PFIZER INC-2013232172

PATIENT
  Sex: Female

DRUGS (2)
  1. ZOLOFT [Suspect]
     Dosage: UNK
  2. ZOLOFT [Suspect]
     Dosage: HALF THE DOSE OF THE INITIAL DOSE, UNK
     Dates: end: 2013

REACTIONS (3)
  - Activities of daily living impaired [Recovered/Resolved]
  - Drug withdrawal syndrome [Unknown]
  - Speech disorder [Recovered/Resolved]
